FAERS Safety Report 18640070 (Version 1)
Quarter: 2020Q4

REPORT INFORMATION
  Report Type: Other
  Country: GB (occurrence: GB)
  Receive Date: 20201220
  Receipt Date: 20201220
  Transmission Date: 20210114
  Serious: No
  Sender: FDA-Public Use
  Company Number: GB-LUPIN PHARMACEUTICALS INC.-2020-10139

PATIENT
  Age: 40 Year
  Sex: Female

DRUGS (17)
  1. BUDESONIDE. [Concomitant]
     Active Substance: BUDESONIDE
     Indication: ILL-DEFINED DISORDER
     Dosage: UNK
     Route: 065
  2. FOLIC ACID. [Concomitant]
     Active Substance: FOLIC ACID
     Indication: ILL-DEFINED DISORDER
     Dosage: UNK
     Route: 065
  3. ZOPICLONE [Concomitant]
     Active Substance: ZOPICLONE
     Indication: ILL-DEFINED DISORDER
     Dosage: UNK
     Route: 065
  4. THIAMINE. [Concomitant]
     Active Substance: THIAMINE
     Indication: ILL-DEFINED DISORDER
     Dosage: UNK
     Route: 065
  5. MEBEVERINE [Concomitant]
     Active Substance: MEBEVERINE
     Indication: ILL-DEFINED DISORDER
     Dosage: UNK
     Route: 065
  6. APIXABAN [Concomitant]
     Active Substance: APIXABAN
     Indication: ILL-DEFINED DISORDER
     Dosage: UNK
     Route: 065
  7. AMOXICILLIN. [Concomitant]
     Active Substance: AMOXICILLIN
     Indication: ILL-DEFINED DISORDER
     Dosage: UNK
     Route: 065
  8. SPIRONOLACTONE. [Concomitant]
     Active Substance: SPIRONOLACTONE
     Indication: ILL-DEFINED DISORDER
     Dosage: UNK
     Route: 065
  9. CASSIA SENNA [Concomitant]
     Active Substance: HERBALS\SENNOSIDES
     Indication: ILL-DEFINED DISORDER
     Dosage: UNK
     Route: 065
  10. SERTRALINE [Suspect]
     Active Substance: SERTRALINE HYDROCHLORIDE
     Indication: DEPRESSION
     Dosage: 200 MILLIGRAM
     Route: 048
     Dates: start: 20200707
  11. AMITRIPTYLINE [Concomitant]
     Active Substance: AMITRIPTYLINE
     Indication: ILL-DEFINED DISORDER
     Dosage: UNK
     Route: 065
  12. VENTOLIN [Concomitant]
     Active Substance: ALBUTEROL SULFATE
     Indication: ILL-DEFINED DISORDER
     Dosage: UNK
     Route: 065
  13. ZEROBASE [PARAFFIN, LIQUID] [Concomitant]
     Indication: ILL-DEFINED DISORDER
     Dosage: UNK
     Route: 065
  14. PROPRANOLOL [Concomitant]
     Active Substance: PROPRANOLOL HYDROCHLORIDE
     Indication: ILL-DEFINED DISORDER
     Dosage: UNK
     Route: 065
  15. BUTEC [Concomitant]
     Active Substance: BUPRENORPHINE
     Indication: ILL-DEFINED DISORDER
     Dosage: UNK
     Route: 065
  16. GAVISCON ADVANCED [Concomitant]
     Indication: ILL-DEFINED DISORDER
     Dosage: UNK
     Route: 065
  17. LANSOPRAZOLE. [Concomitant]
     Active Substance: LANSOPRAZOLE
     Indication: ILL-DEFINED DISORDER
     Dosage: UNK
     Route: 065

REACTIONS (1)
  - Alopecia [Recovering/Resolving]

NARRATIVE: CASE EVENT DATE: 20200729
